FAERS Safety Report 4331741-2 (Version None)
Quarter: 2004Q2

REPORT INFORMATION
  Report Type: 
  Country: None (occurrence: None)
  Receive Date: 20040405
  Receipt Date: 20030516
  Transmission Date: 20050107
  Serious: No
  Sender: FDA-Public Use
  Company Number: US-GLAXOSMITHKLINE-A0408822A

PATIENT
  Age: 69 Year
  Sex: Male

DRUGS (13)
  1. FLOVENT [Suspect]
     Dosage: 2PUFF TWICE PER DAY
     Route: 055
  2. COMBIVENT [Concomitant]
  3. ATROVENT [Concomitant]
  4. ALBUTEROL [Concomitant]
  5. OXYGEN [Concomitant]
  6. ATENOLOL [Concomitant]
  7. FUROSEMIDE [Concomitant]
  8. LOPID [Concomitant]
  9. HYDROCODONE [Concomitant]
  10. QUININE [Concomitant]
  11. VALIUM [Concomitant]
  12. HYTRIN [Concomitant]
  13. SINGULAIR [Concomitant]

REACTIONS (1)
  - DYSPNOEA [None]
